FAERS Safety Report 11503818 (Version 1)
Quarter: 2015Q3

REPORT INFORMATION
  Report Type: Report from Study
  Country: US (occurrence: US)
  Receive Date: 20150914
  Receipt Date: 20150914
  Transmission Date: 20151125
  Serious: Yes (Death, Hospitalization)
  Sender: FDA-Public Use
  Company Number: US-ACTELION-A-US2015-120509

PATIENT
  Age: 65 Year
  Sex: Female

DRUGS (5)
  1. VELETRI [Suspect]
     Active Substance: EPOPROSTENOL
     Indication: PULMONARY HYPERTENSION
     Dosage: 12 NG/KG, PER MIN
     Route: 042
     Dates: start: 20150625, end: 20150904
  2. VELETRI [Suspect]
     Active Substance: EPOPROSTENOL
     Dosage: 13 NG/KG, PER MIN
     Route: 042
  3. VELETRI [Suspect]
     Active Substance: EPOPROSTENOL
     Dosage: 18 NG/KG, PER MIN
     Route: 042
     Dates: start: 20150625
  4. ADCIRCA [Concomitant]
     Active Substance: TADALAFIL
  5. REVATIO [Concomitant]
     Active Substance: SILDENAFIL CITRATE

REACTIONS (14)
  - Laryngitis [Unknown]
  - Diarrhoea [Unknown]
  - Dyspnoea [Unknown]
  - Death [Fatal]
  - Feeding disorder [Unknown]
  - Epistaxis [Unknown]
  - Asthenia [Unknown]
  - Vomiting [Unknown]
  - Nausea [Not Recovered/Not Resolved]
  - Poor quality sleep [Unknown]
  - Oesophageal motility disorder [Unknown]
  - Therapeutic response delayed [Unknown]
  - Pain in jaw [Not Recovered/Not Resolved]
  - Peripheral swelling [Unknown]
